FAERS Safety Report 4658787-9 (Version None)
Quarter: 2005Q2

REPORT INFORMATION
  Report Type: 
  Country: None (occurrence: None)
  Receive Date: 20050509
  Receipt Date: 20050428
  Transmission Date: 20051028
  Serious: Yes (Other)
  Sender: FDA-Public Use
  Company Number: 2005067729

PATIENT
  Age: 80 Year
  Sex: Female

DRUGS (1)
  1. NORVASC [Suspect]
     Indication: HYPERTENSION
     Dosage: SEE IMAGE
     Route: 048
     Dates: start: 20041215, end: 20050404

REACTIONS (4)
  - BLOOD ELECTROLYTES ABNORMAL [None]
  - FALL [None]
  - HYPOTENSION [None]
  - UPPER LIMB FRACTURE [None]
